FAERS Safety Report 15317066 (Version 4)
Quarter: 2019Q3

REPORT INFORMATION
  Report Type: Spontaneous
  Country: US (occurrence: US)
  Receive Date: 20180824
  Receipt Date: 20190930
  Transmission Date: 20191004
  Serious: Yes (Other)
  Sender: FDA-Public Use
  Company Number: US-PFIZER INC-2018342899

PATIENT
  Age: 39 Year
  Sex: Female

DRUGS (6)
  1. LYRICA [Suspect]
     Active Substance: PREGABALIN
     Indication: PAIN
     Dosage: 75 MG, 1X/DAY (AT BEDTIME)
  2. LYRICA [Suspect]
     Active Substance: PREGABALIN
     Indication: FIBROMYALGIA
     Dosage: 75 MG, 2X/DAY
  3. LYRICA [Suspect]
     Active Substance: PREGABALIN
     Indication: NEURALGIA
  4. LYRICA [Suspect]
     Active Substance: PREGABALIN
     Indication: SCIATICA
  5. LYRICA [Suspect]
     Active Substance: PREGABALIN
     Indication: BARRETT^S OESOPHAGUS
     Dosage: 75 MG, 1X/DAY (AT BEDTIME)
  6. LYRICA [Suspect]
     Active Substance: PREGABALIN
     Indication: SCOLIOSIS

REACTIONS (4)
  - Sacroiliitis [Unknown]
  - Inflammatory bowel disease [Unknown]
  - Drug ineffective [Unknown]
  - Drug dependence [Unknown]
